FAERS Safety Report 6814713-5 (Version None)
Quarter: 2010Q3

REPORT INFORMATION
  Report Type: 
  Country: None (occurrence: None)
  Receive Date: 20100701
  Receipt Date: 20100701
  Transmission Date: 20110219
  Serious: Yes (Life-Threatening, Disabling)
  Sender: FDA-Public Use
  Company Number: None

PATIENT
  Sex: Female
  Weight: 61.2356 kg

DRUGS (2)
  1. LEVAQUIN [Suspect]
     Indication: PNEUMONIA
     Dosage: 1 @ DAY FOR 7 DAYS NO REFILLS KING SOOPERS
     Dates: start: 20090323
  2. LEVAQUIN [Suspect]
     Indication: PNEUMONIA
     Dosage: 1 @ DAY FOR 10 DAYS NO REFILLS KING SOOPERS # 42
     Dates: start: 20090324

REACTIONS (3)
  - ACTIVITIES OF DAILY LIVING IMPAIRED [None]
  - ASTHENIA [None]
  - TENDON PAIN [None]
